FAERS Safety Report 23953753 (Version 5)
Quarter: 2024Q3

REPORT INFORMATION
  Report Type: Report from Study
  Country: CA (occurrence: CA)
  Receive Date: 20240609
  Receipt Date: 20240810
  Transmission Date: 20241016
  Serious: Yes (Other)
  Sender: ROCHE
  Company Number: CA-ROCHE-3523656

PATIENT
  Age: 53 Year
  Sex: Female

DRUGS (3)
  1. OCRELIZUMAB [Suspect]
     Active Substance: OCRELIZUMAB
     Indication: Relapsing-remitting multiple sclerosis
     Dosage: 300 MG AT DAY 0 AND 14, THEN 600 MG EVERY 6 MONTHS
     Route: 042
     Dates: start: 20240124
  2. LYRICA [Concomitant]
     Active Substance: PREGABALIN
     Indication: Neuralgia
  3. PERCOCET [Concomitant]
     Active Substance: ACETAMINOPHEN\OXYCODONE HYDROCHLORIDE

REACTIONS (12)
  - Spinal disorder [Unknown]
  - Intervertebral disc operation [Unknown]
  - Neck surgery [Unknown]
  - Arthritis [Recovering/Resolving]
  - Multiple sclerosis relapse [Recovering/Resolving]
  - Pain in extremity [Recovering/Resolving]
  - Fatigue [Not Recovered/Not Resolved]
  - Muscular weakness [Not Recovered/Not Resolved]
  - General physical health deterioration [Not Recovered/Not Resolved]
  - Infection [Unknown]
  - Postoperative wound infection [Recovered/Resolved]
  - Polycystic ovarian syndrome [Not Recovered/Not Resolved]

NARRATIVE: CASE EVENT DATE: 20240508
